FAERS Safety Report 8438137-2 (Version None)
Quarter: 2012Q2

REPORT INFORMATION
  Report Type: 
  Country: None (occurrence: None)
  Receive Date: 20120614
  Receipt Date: 20101013
  Transmission Date: 20120825
  Serious: Yes (Hospitalization, Other)
  Sender: FDA-Public Use
  Company Number: CA-ROCHE-GNE301305

PATIENT
  Sex: Male
  Weight: 54.058 kg

DRUGS (2)
  1. OMALIZUMAB [Suspect]
     Indication: ASTHMA
     Dosage: 300 MG, Q2W
     Route: 058
     Dates: start: 20060202
  2. OMALIZUMAB [Suspect]
     Dosage: 300 MG, Q2W
     Route: 058
     Dates: start: 20101110

REACTIONS (8)
  - EATING DISORDER [None]
  - PNEUMONIA [None]
  - OXYGEN SATURATION DECREASED [None]
  - URINARY TRACT INFECTION [None]
  - ASTHENIA [None]
  - COUGH [None]
  - ASTHMA [None]
  - RIB FRACTURE [None]
